FAERS Safety Report 5301224-1 (Version None)
Quarter: 2007Q2

REPORT INFORMATION
  Report Type: 
  Country: None (occurrence: None)
  Receive Date: 20070411
  Receipt Date: 20070403
  Transmission Date: 20071010
  Serious: Yes (Hospitalization)
  Sender: FDA-Public Use
  Company Number: 2007-01738

PATIENT
  Age: 56 Year
  Sex: Female

DRUGS (2)
  1. CHLORDIAZEPOXIDE/AMITRYPTYLIN HCL (UNKNOWN STRENGTH) (WATSON)(AMITRIPT [Suspect]
     Indication: BIPOLAR DISORDER
     Dosage: 50 MG, DAILY, ORAL, 25 MG, DAILY, ORAL
     Route: 048
     Dates: start: 19980901, end: 19990501
  2. CHLORDIAZEPOXIDE/AMITRYPTYLIN HCL (UNKNOWN STRENGTH) (WATSON)(AMITRIPT [Suspect]
     Indication: BIPOLAR DISORDER
     Dosage: 50 MG, DAILY, ORAL, 25 MG, DAILY, ORAL
     Route: 048
     Dates: start: 19990501, end: 20000801

REACTIONS (2)
  - CONGESTIVE CARDIOMYOPATHY [None]
  - DISEASE RECURRENCE [None]
